FAERS Safety Report 12852645 (Version 1)
Quarter: 2016Q4

REPORT INFORMATION
  Report Type: Spontaneous
  Country: US (occurrence: US)
  Receive Date: 20161016
  Receipt Date: 20161016
  Transmission Date: 20170207
  Serious: Yes (Life-Threatening, Hospitalization, Other)
  Sender: FDA-Public Use
  Company Number: None

PATIENT
  Age: 29 Year
  Sex: Female
  Weight: 45.9 kg

DRUGS (3)
  1. ZONEGRAN [Suspect]
     Active Substance: ZONISAMIDE
     Indication: SEIZURE
     Dates: start: 19981001, end: 20161014
  2. KEPPRA [Concomitant]
     Active Substance: LEVETIRACETAM
  3. VALIUM [Concomitant]
     Active Substance: DIAZEPAM

REACTIONS (4)
  - Nephrolithiasis [None]
  - Pneumonia [None]
  - Tachycardia [None]
  - Renal atrophy [None]

NARRATIVE: CASE EVENT DATE: 20161006
